FAERS Safety Report 8587543-4 (Version None)
Quarter: 2012Q3

REPORT INFORMATION
  Report Type: 
  Country: None (occurrence: None)
  Receive Date: 20120810
  Receipt Date: 20120803
  Transmission Date: 20120928
  Serious: Yes (Hospitalization, Other)
  Sender: FDA-Public Use
  Company Number: US-RB-043202-12

PATIENT

DRUGS (1)
  1. SUBOXONE [Suspect]
     Indication: PRODUCT USED FOR UNKNOWN INDICATION
     Dosage: SUBOXONE FILM; INJECTION OF THE MEDICATION; DOSING DETAILS UNKNOWN
     Route: 065

REACTIONS (2)
  - INTENTIONAL DRUG MISUSE [None]
  - RHABDOMYOLYSIS [None]
